FAERS Safety Report 11329804 (Version 2)
Quarter: 2016Q2

REPORT INFORMATION
  Report Type: Report from Study
  Country: PK (occurrence: PK)
  Receive Date: 20150803
  Receipt Date: 20160623
  Transmission Date: 20160815
  Serious: Yes (Death, Other)
  Sender: FDA-Public Use
  Company Number: PHHY2015PK091712

PATIENT
  Sex: Male

DRUGS (1)
  1. GLIVEC [Suspect]
     Active Substance: IMATINIB MESYLATE
     Indication: CHRONIC MYELOID LEUKAEMIA
     Dosage: 400 MG, UNK
     Route: 048
     Dates: start: 20130307

REACTIONS (6)
  - Myocardial infarction [Fatal]
  - Angina pectoris [Fatal]
  - Pain in extremity [Fatal]
  - Vomiting [Fatal]
  - Restlessness [Fatal]
  - Nausea [Fatal]
